FAERS Safety Report 5175188-8 (Version None)
Quarter: 2006Q4

REPORT INFORMATION
  Report Type: 
  Country: None (occurrence: None)
  Receive Date: 20061214
  Receipt Date: 20060310
  Transmission Date: 20070319
  Serious: Yes (Hospitalization)
  Sender: FDA-Public Use
  Company Number: 2006UW04324

PATIENT
  Age: 88 Year
  Sex: Female

DRUGS (22)
  1. TENORMIN [Suspect]
     Indication: HYPERTENSION
     Route: 048
     Dates: start: 20060216
  2. FENOFIBRATE [Suspect]
     Indication: DIABETES MELLITUS NON-INSULIN-DEPENDENT
     Route: 048
     Dates: start: 20051201, end: 20060309
  3. METFORMIN [Suspect]
     Indication: DIABETES MELLITUS NON-INSULIN-DEPENDENT
     Route: 048
     Dates: start: 20051201, end: 20060309
  4. CRESTOR [Suspect]
     Indication: DIABETES MELLITUS NON-INSULIN-DEPENDENT
     Route: 048
     Dates: start: 20051201, end: 20060309
  5. ASPIRIN [Concomitant]
     Indication: PROPHYLAXIS
     Route: 048
  6. LIPITOR [Concomitant]
     Indication: DYSLIPIDAEMIA
     Route: 048
     Dates: end: 20051117
  7. METFORMIN [Concomitant]
     Indication: DIABETES MELLITUS
     Route: 048
     Dates: end: 20051117
  8. SYNTHROID [Concomitant]
     Indication: HYPOTHYROIDISM
     Route: 048
  9. NEXIUM [Concomitant]
     Indication: GASTROOESOPHAGEAL REFLUX DISEASE
     Route: 048
  10. IMDUR [Concomitant]
     Indication: ANGINA PECTORIS
     Route: 048
  11. TYLENOL [Concomitant]
     Indication: PAIN IN EXTREMITY
     Route: 048
  12. CALCIUM [Concomitant]
     Indication: OSTEOPOROSIS
     Route: 048
  13. VITAMIN D [Concomitant]
     Indication: OSTEOPOROSIS
     Route: 048
  14. VERAPAMIL EXTENDED-RELEASE [Concomitant]
     Indication: HYPERTENSION
     Dates: start: 20060310
  15. VERAPAMIL EXTENDED-RELEASE [Concomitant]
     Dates: start: 20060106, end: 20060309
  16. VERAPAMIL EXTENDED-RELEASE [Concomitant]
     Dates: start: 20060105
  17. VITALUX [Concomitant]
     Indication: GLAUCOMA
     Route: 048
  18. FLUVIRAL [Concomitant]
     Indication: PROPHYLAXIS
     Route: 030
     Dates: start: 20051118, end: 20051118
  19. ZITHROMAX [Concomitant]
     Indication: BRONCHITIS ACUTE
     Route: 048
     Dates: start: 20060223, end: 20060227
  20. HYZAAR [Concomitant]
     Indication: HYPERTENSION
     Route: 048
     Dates: start: 20051001, end: 20060126
  21. HYZAAR [Concomitant]
     Route: 048
     Dates: start: 20060127
  22. COZAAR [Concomitant]
     Indication: HYPERTENSION
     Route: 048
     Dates: start: 20060116, end: 20060126

REACTIONS (2)
  - BRONCHITIS [None]
  - PULMONARY OEDEMA [None]
